FAERS Safety Report 12896967 (Version 1)
Quarter: 2016Q4

REPORT INFORMATION
  Report Type: Spontaneous
  Country: US (occurrence: US)
  Receive Date: 20161031
  Receipt Date: 20161031
  Transmission Date: 20170207
  Serious: No
  Sender: FDA-Public Use
  Company Number: US-AKRIMAX-TIR-2016-0896

PATIENT
  Age: 67 Year
  Sex: Female

DRUGS (4)
  1. TIROSINT [Suspect]
     Active Substance: LEVOTHYROXINE SODIUM
     Indication: THYROIDECTOMY
     Dosage: ONCE DAILY
     Route: 048
     Dates: end: 201607
  2. CALTRATE [Suspect]
     Active Substance: CALCIUM CARBONATE
     Indication: PRODUCT USED FOR UNKNOWN INDICATION
     Dates: start: 201607, end: 20160711
  3. TIROSINT [Suspect]
     Active Substance: LEVOTHYROXINE SODIUM
     Indication: THYROIDECTOMY
     Dosage: ONCE DAILY
     Route: 048
     Dates: start: 201607, end: 20160714
  4. TIROSINT [Suspect]
     Active Substance: LEVOTHYROXINE SODIUM
     Dosage: ONCE DAILY
     Route: 048
     Dates: start: 20160715

REACTIONS (15)
  - Dizziness [Recovered/Resolved]
  - Dysgeusia [Unknown]
  - Pruritus [Unknown]
  - Drug level above therapeutic [Unknown]
  - Urticaria [Unknown]
  - Feeling abnormal [Unknown]
  - Insomnia [Unknown]
  - Sleep disorder [Unknown]
  - Erythema [Unknown]
  - Abdominal discomfort [Unknown]
  - Rash [Unknown]
  - Erythema [Unknown]
  - Malaise [Unknown]
  - Pain [Unknown]
  - Urticaria [Not Recovered/Not Resolved]

NARRATIVE: CASE EVENT DATE: 201607
